FAERS Safety Report 16877915 (Version 2)
Quarter: 2019Q4

REPORT INFORMATION
  Report Type: Spontaneous
  Country: JP (occurrence: JP)
  Receive Date: 20191002
  Receipt Date: 20191016
  Transmission Date: 20200122
  Serious: Yes (Other)
  Sender: FDA-Public Use
  Company Number: JP-EISAI MEDICAL RESEARCH-EC-2019-062811

PATIENT
  Age: 69 Year
  Sex: Female

DRUGS (1)
  1. HALAVEN [Suspect]
     Active Substance: ERIBULIN MESYLATE
     Indication: ANGIOSARCOMA
     Dosage: DOSAGE UNKNOWN
     Route: 041

REACTIONS (2)
  - Disseminated intravascular coagulation [Unknown]
  - Thrombocytopenia [Unknown]
